FAERS Safety Report 16393710 (Version 1)
Quarter: 2019Q2

REPORT INFORMATION
  Report Type: Spontaneous
  Country: US (occurrence: US)
  Receive Date: 20190430
  Receipt Date: 20190430
  Transmission Date: 20190711
  Serious: Yes (Life-Threatening)
  Sender: FDA-Public Use
  Company Number: None

PATIENT
  Age: 53 Year
  Sex: Female
  Weight: 78.93 kg

DRUGS (4)
  1. 5FU [Concomitant]
     Active Substance: FLUOROURACIL
  2. OXALIPLATIN VIAL 100MG [Suspect]
     Active Substance: OXALIPLATIN
     Indication: COLON CANCER
     Dosage: ?          OTHER FREQUENCY:Q 21 DAYS;?
     Route: 042
     Dates: start: 20190429
  3. OXALIPLATIN. [Suspect]
     Active Substance: OXALIPLATIN
  4. LEUOVORIN [Concomitant]

REACTIONS (1)
  - Unevaluable event [None]

NARRATIVE: CASE EVENT DATE: 20190429
